FAERS Safety Report 23864352 (Version 1)
Quarter: 2024Q2

REPORT INFORMATION
  Report Type: Spontaneous
  Country: US (occurrence: US)
  Receive Date: 20240516
  Receipt Date: 20240516
  Transmission Date: 20240715
  Serious: No
  Sender: FDA-Public Use
  Company Number: US-IMP-2024000120

PATIENT
  Age: 81 Year
  Sex: Male

DRUGS (1)
  1. VEVYE [Suspect]
     Active Substance: CYCLOSPORINE
     Indication: Product used for unknown indication
     Route: 047
     Dates: start: 20240315

REACTIONS (4)
  - Dizziness [Unknown]
  - Brain fog [Unknown]
  - Impaired driving ability [Unknown]
  - Vision blurred [Unknown]

NARRATIVE: CASE EVENT DATE: 20240316
